FAERS Safety Report 4466227-8 (Version None)
Quarter: 2004Q4

REPORT INFORMATION
  Report Type: 
  Country: None (occurrence: None)
  Receive Date: 20041005
  Receipt Date: 20040927
  Transmission Date: 20050328
  Serious: Yes (Death)
  Sender: FDA-Public Use
  Company Number: US-JNJFOC-20040909365

PATIENT
  Sex: Male

DRUGS (4)
  1. RISPERDAL [Suspect]
     Indication: SCHIZOPHRENIA
     Route: 049
  2. DEPAKOTE [Concomitant]
  3. TRAZODONE HCL [Concomitant]
  4. LAMICTAL [Concomitant]

REACTIONS (1)
  - ROAD TRAFFIC ACCIDENT [None]
